FAERS Safety Report 16655850 (Version 1)
Quarter: 2019Q3

REPORT INFORMATION
  Report Type: Spontaneous
  Country: US (occurrence: US)
  Receive Date: 20190801
  Receipt Date: 20190801
  Transmission Date: 20191004
  Serious: No
  Sender: FDA-Public Use
  Company Number: US-009507513-1908USA000208

PATIENT
  Sex: Female
  Weight: 65.76 kg

DRUGS (1)
  1. NEXPLANON [Suspect]
     Active Substance: ETONOGESTREL
     Indication: CONTRACEPTION
     Dosage: 1 DOSAGE FORM, 4 YEARS
     Route: 059
     Dates: start: 201603

REACTIONS (6)
  - Mental disorder [Unknown]
  - Complication of device removal [Not Recovered/Not Resolved]
  - Product prescribing error [Unknown]
  - Implant site pain [Unknown]
  - Incorrect product administration duration [Unknown]
  - Device breakage [Not Recovered/Not Resolved]

NARRATIVE: CASE EVENT DATE: 201903
